FAERS Safety Report 7120136-4 (Version None)
Quarter: 2010Q4

REPORT INFORMATION
  Report Type: 
  Country: None (occurrence: None)
  Receive Date: 20101123
  Receipt Date: 20101117
  Transmission Date: 20110411
  Serious: Yes (Other)
  Sender: FDA-Public Use
  Company Number: US-US-EMD SERONO, INC.-7028463

PATIENT
  Sex: Female

DRUGS (3)
  1. REBIF [Suspect]
     Indication: PRODUCT USED FOR UNKNOWN INDICATION
     Route: 058
     Dates: start: 20070813
  2. COUMADIN [Concomitant]
  3. ALEVE (CAPLET) [Concomitant]
     Indication: PREMEDICATION

REACTIONS (8)
  - DRUG LEVEL INCREASED [None]
  - FALL [None]
  - HAEMORRHAGE [None]
  - HEAD INJURY [None]
  - INJECTION SITE ERYTHEMA [None]
  - PYREXIA [None]
  - THROMBOSIS [None]
  - URINARY TRACT INFECTION [None]
